FAERS Safety Report 17431671 (Version 3)
Quarter: 2020Q1

REPORT INFORMATION
  Report Type: Spontaneous
  Country: US (occurrence: US)
  Receive Date: 20200218
  Receipt Date: 20200309
  Transmission Date: 20200409
  Serious: Yes (Hospitalization, Other)
  Sender: FDA-Public Use
  Company Number: US-009507513-2002USA006250

PATIENT
  Age: 59 Year
  Sex: Male
  Weight: 56.99 kg

DRUGS (5)
  1. KEYTRUDA [Suspect]
     Active Substance: PEMBROLIZUMAB
     Indication: SQUAMOUS CELL CARCINOMA
     Dosage: 200 MILLIGRAM, Q3W(EVERY 3 WEEKS)
     Route: 042
     Dates: end: 20200211
  2. GRANIX [Concomitant]
     Active Substance: TBO-FILGRASTIM
     Dosage: 480 MILLIGRAM, AD
     Route: 058
  3. CARBOPLATIN. [Concomitant]
     Active Substance: CARBOPLATIN
     Dosage: 183 MILLIGRAM, AD
     Route: 042
  4. PACLITAXEL. [Concomitant]
     Active Substance: PACLITAXEL
     Dosage: 183 MILLIGRAM, AD
     Route: 042
  5. SERTRALINE HYDROCHLORIDE. [Concomitant]
     Active Substance: SERTRALINE HYDROCHLORIDE
     Dosage: 50 MILLIGRAM
     Route: 048

REACTIONS (2)
  - Acute interstitial pneumonitis [Not Recovered/Not Resolved]
  - Adverse event [Unknown]

NARRATIVE: CASE EVENT DATE: 202001
